FAERS Safety Report 19123267 (Version 1)
Quarter: 2021Q2

REPORT INFORMATION
  Report Type: Spontaneous
  Country: IN (occurrence: IN)
  Receive Date: 20210412
  Receipt Date: 20210412
  Transmission Date: 20210717
  Serious: Yes (Other)
  Sender: FDA-Public Use
  Company Number: IN-JUBILANT CADISTA PHARMACEUTICALS-2021JUB00112

PATIENT
  Age: 43 Year
  Sex: Female

DRUGS (3)
  1. ACELOFENAC/PARACETAMOL [Concomitant]
     Route: 065
  2. CARBAMAZEPINE. [Suspect]
     Active Substance: CARBAMAZEPINE
     Indication: POST HERPETIC NEURALGIA
     Dosage: 200 MG, 2X/DAY
     Route: 048
  3. ACYCLOVIR. [Concomitant]
     Active Substance: ACYCLOVIR
     Indication: HERPES ZOSTER
     Route: 065

REACTIONS (1)
  - Fixed eruption [Recovering/Resolving]
